FAERS Safety Report 21600223 (Version 3)
Quarter: 2022Q4

REPORT INFORMATION
  Report Type: Other
  Country: US (occurrence: None)
  Receive Date: 20221116
  Receipt Date: 20221216
  Transmission Date: 20230112
  Serious: Yes (Death)
  Sender: FDA-Public Use
  Company Number: US-ROCHE-3219247

PATIENT
  Age: 69 Year
  Sex: Female
  Weight: 90.3 kg

DRUGS (3)
  1. TECENTRIQ [Suspect]
     Active Substance: ATEZOLIZUMAB
     Indication: Breast cancer female
     Dosage: INFUSE 840MG INTRAVENOUSLY ON DAY(S) 1 AND DAY(S) 15 REPEAT EVERY 28 DAY(S)?DATE OF SERVICE: 16/JUN/
     Route: 042
  2. TECENTRIQ [Suspect]
     Active Substance: ATEZOLIZUMAB
     Indication: Metastases to bone
  3. TECENTRIQ [Suspect]
     Active Substance: ATEZOLIZUMAB
     Indication: Agranulocytosis

REACTIONS (2)
  - Death [Fatal]
  - Off label use [Unknown]
